FAERS Safety Report 24266536 (Version 3)
Quarter: 2025Q2

REPORT INFORMATION
  Report Type: Report from Study
  Country: RO (occurrence: RO)
  Receive Date: 20240830
  Receipt Date: 20250514
  Transmission Date: 20250717
  Serious: Yes (Other)
  Sender: ROCHE
  Company Number: RO-ROCHE-2729234

PATIENT
  Age: 78 Year
  Sex: Female
  Weight: 68 kg

DRUGS (1)
  1. TOCILIZUMAB [Suspect]
     Active Substance: TOCILIZUMAB
     Indication: Rheumatoid arthritis
     Dosage: FORM STRENGTH: 162 MG/0.9 ML
     Route: 058
     Dates: start: 2018

REACTIONS (8)
  - Cataract [Not Recovered/Not Resolved]
  - Memory impairment [Unknown]
  - Ill-defined disorder [Unknown]
  - Blindness [Unknown]
  - Visual impairment [Unknown]
  - Visual impairment [Unknown]
  - Diabetes mellitus [Unknown]
  - Reading disorder [Unknown]

NARRATIVE: CASE EVENT DATE: 20180101
